FAERS Safety Report 20040943 (Version 1)
Quarter: 2021Q4

REPORT INFORMATION
  Report Type: Other
  Country: None (occurrence: US)
  Receive Date: 20211107
  Receipt Date: 20211107
  Transmission Date: 20220303
  Serious: Yes (Hospitalization)
  Sender: FDA-Public Use
  Company Number: US-OrBion Pharmaceuticals Private Limited-2121551

PATIENT
  Age: 52 Year
  Sex: Male

DRUGS (1)
  1. AMLODIPINE BESYLATE [Suspect]
     Active Substance: AMLODIPINE BESYLATE
     Route: 065

REACTIONS (5)
  - Intentional overdose [Recovered/Resolved]
  - Shock [Recovered/Resolved]
  - Hypoxia [Recovered/Resolved]
  - Acute respiratory distress syndrome [Recovered/Resolved]
  - Hyperdynamic left ventricle [Recovered/Resolved]
